FAERS Safety Report 5379922-3 (Version None)
Quarter: 2007Q3

REPORT INFORMATION
  Report Type: 
  Country: None (occurrence: None)
  Receive Date: 20070706
  Receipt Date: 20070629
  Transmission Date: 20080115
  Serious: Yes (Other)
  Sender: FDA-Public Use
  Company Number: PHBS2007JP11150

PATIENT
  Age: 74 Year
  Sex: Male

DRUGS (7)
  1. DIOVAN [Suspect]
     Indication: HYPERTENSION
     Dosage: 120 MG/DAY
     Route: 048
     Dates: start: 20050201, end: 20070601
  2. DIGITALIS TAB [Concomitant]
     Route: 048
     Dates: start: 20050201
  3. PREDNISOLONE [Concomitant]
     Dosage: 5 MG, UNK
     Route: 048
     Dates: start: 20050201
  4. ASPIRIN [Concomitant]
     Route: 048
     Dates: start: 20050201
  5. MEXITIL [Concomitant]
     Route: 048
     Dates: start: 20050201
  6. URSO 250 [Concomitant]
     Dosage: 150 MG, UNK
     Dates: start: 20050201
  7. CALCIUM CARBONATE [Concomitant]
     Dosage: 6 DF, UNK
     Dates: start: 20050201

REACTIONS (6)
  - ALANINE AMINOTRANSFERASE INCREASED [None]
  - ASPARTATE AMINOTRANSFERASE INCREASED [None]
  - BLOOD BILIRUBIN INCREASED [None]
  - GAMMA-GLUTAMYLTRANSFERASE INCREASED [None]
  - LIVER DISORDER [None]
  - WHITE BLOOD CELL COUNT INCREASED [None]
